FAERS Safety Report 20372151 (Version 1)
Quarter: 2022Q1

REPORT INFORMATION
  Report Type: Spontaneous
  Country: US (occurrence: US)
  Receive Date: 20220124
  Receipt Date: 20220124
  Transmission Date: 20220423
  Serious: Yes (Other)
  Sender: FDA-Public Use
  Company Number: US-009507513-2201USA004847

PATIENT
  Sex: Female
  Weight: 79.365 kg

DRUGS (4)
  1. KEYTRUDA [Suspect]
     Active Substance: PEMBROLIZUMAB
     Indication: Uterine cancer
  2. KEYTRUDA [Suspect]
     Active Substance: PEMBROLIZUMAB
     Indication: Endometrial cancer
  3. LENVATINIB MESYLATE [Suspect]
     Active Substance: LENVATINIB MESYLATE
     Indication: Uterine cancer
     Dosage: 20 MILLIGRAM, QD
     Route: 048
     Dates: start: 20211213
  4. LENVATINIB MESYLATE [Suspect]
     Active Substance: LENVATINIB MESYLATE
     Indication: Endometrial cancer

REACTIONS (10)
  - Neuropathy peripheral [Recovering/Resolving]
  - Colitis [Not Recovered/Not Resolved]
  - Insomnia [Unknown]
  - Blood pressure increased [Recovering/Resolving]
  - White blood cell count increased [Unknown]
  - Mass [Recovering/Resolving]
  - Hepatic mass [Unknown]
  - Adverse drug reaction [Unknown]
  - Asthenia [Unknown]
  - Muscle spasms [Not Recovered/Not Resolved]
